FAERS Safety Report 11660479 (Version 1)
Quarter: 2015Q4

REPORT INFORMATION
  Report Type: Spontaneous
  Country: JP (occurrence: JP)
  Receive Date: 20151026
  Receipt Date: 20151026
  Transmission Date: 20160304
  Serious: Yes (Hospitalization)
  Sender: FDA-Public Use
  Company Number: JP-AKORN PHARMACEUTICALS-2015AKN00616

PATIENT
  Age: 71 Year
  Sex: Female

DRUGS (3)
  1. FLUMETHOLON [Concomitant]
     Active Substance: FLUOROMETHOLONE
     Dosage: UNK
     Dates: start: 20121130
  2. ZIOPTAN [Suspect]
     Active Substance: TAFLUPROST
     Indication: NORMAL TENSION GLAUCOMA
     Dosage: 1 GTT, QD OU
     Dates: start: 20120205
  3. CRAVIT [Concomitant]
     Active Substance: LEVOFLOXACIN
     Dosage: UNK
     Route: 047
     Dates: start: 20121130

REACTIONS (1)
  - Cerebral infarction [Unknown]
